FAERS Safety Report 22055680 (Version 2)
Quarter: 2024Q4

REPORT INFORMATION
  Report Type: Spontaneous
  Country: CA (occurrence: CA)
  Receive Date: 20230302
  Receipt Date: 20241024
  Transmission Date: 20250115
  Serious: Yes (Life-Threatening, Hospitalization, Disabling, Other)
  Sender: CIPHER
  Company Number: E2B_05302893

PATIENT
  Age: 44 Year
  Sex: Female
  Weight: 97 kg

DRUGS (20)
  1. TRAMADOL HYDROCHLORIDE [Suspect]
     Active Substance: TRAMADOL HYDROCHLORIDE
     Indication: Product used for unknown indication
  2. DICLOFENAC SODIUM [Suspect]
     Active Substance: DICLOFENAC SODIUM
     Indication: Rheumatoid arthritis
  3. FOLIC ACID [Suspect]
     Active Substance: FOLIC ACID
     Indication: Rheumatoid arthritis
     Route: 048
  4. HYDROXYCHLOROQUINE [Suspect]
     Active Substance: HYDROXYCHLOROQUINE
     Indication: Rheumatoid arthritis
     Route: 058
  5. KEVZARA [Suspect]
     Active Substance: SARILUMAB
     Indication: Rheumatoid arthritis
  6. LEFLUNOMIDE [Suspect]
     Active Substance: LEFLUNOMIDE
     Indication: Rheumatoid arthritis
     Route: 048
     Dates: start: 20210115, end: 20210122
  7. METHOTREXATE [Suspect]
     Active Substance: METHOTREXATE
     Indication: Product used for unknown indication
  8. OXYCODONE HYDROCHLORIDE [Suspect]
     Active Substance: OXYCODONE HYDROCHLORIDE
     Indication: Product used for unknown indication
  9. PLAQUENIL [Suspect]
     Active Substance: HYDROXYCHLOROQUINE SULFATE
     Indication: Rheumatoid arthritis
  10. PREDNISONE [Suspect]
     Active Substance: PREDNISONE
     Indication: Rheumatoid arthritis
     Route: 048
  11. ALENDRONATE SODIUM [Suspect]
     Active Substance: ALENDRONATE SODIUM
     Indication: Rheumatoid arthritis
     Route: 048
  12. PSEUDOEPHEDRINE HYDROCHLORIDE [Suspect]
     Active Substance: PSEUDOEPHEDRINE HYDROCHLORIDE
     Indication: Product used for unknown indication
  13. SULFAMETHOXAZOLE\TRIMETHOPRIM [Suspect]
     Active Substance: SULFAMETHOXAZOLE\TRIMETHOPRIM
     Indication: Product used for unknown indication
  14. ALENDRONIC ACID [Suspect]
     Active Substance: ALENDRONIC ACID
     Indication: Rheumatoid arthritis
     Route: 048
  15. CELECOXIB [Suspect]
     Active Substance: CELECOXIB
     Indication: Product used for unknown indication
     Route: 048
  16. CETIRIZINE HYDROCHLORIDE [Suspect]
     Active Substance: CETIRIZINE HYDROCHLORIDE
     Indication: Rheumatoid arthritis
  17. CHLORHEXIDINE [Suspect]
     Active Substance: CHLORHEXIDINE
     Indication: Product used for unknown indication
  18. CHLORHEXIDINE GLUCONATE [Suspect]
     Active Substance: CHLORHEXIDINE GLUCONATE
     Indication: Product used for unknown indication
     Dosage: SOLUTION
     Route: 061
  19. CORTISONE ACETATE [Suspect]
     Active Substance: CORTISONE ACETATE
     Indication: Product used for unknown indication
  20. DESOXIMETASONE [Suspect]
     Active Substance: DESOXIMETASONE
     Indication: Rheumatoid arthritis
     Route: 061

REACTIONS (109)
  - Sciatica [Recovered/Resolved with Sequelae]
  - Swollen joint count increased [Recovered/Resolved with Sequelae]
  - Type 2 diabetes mellitus [Recovered/Resolved with Sequelae]
  - Wheezing [Recovered/Resolved with Sequelae]
  - Confusional state [Recovered/Resolved with Sequelae]
  - Asthma [Recovered/Resolved with Sequelae]
  - Autoimmune disorder [Recovered/Resolved with Sequelae]
  - C-reactive protein abnormal [Recovered/Resolved with Sequelae]
  - Chest pain [Recovered/Resolved with Sequelae]
  - Deep vein thrombosis postoperative [Recovered/Resolved with Sequelae]
  - Dry mouth [Recovered/Resolved with Sequelae]
  - Gait inability [Recovered/Resolved with Sequelae]
  - Lip dry [Recovered/Resolved with Sequelae]
  - Liver disorder [Recovered/Resolved with Sequelae]
  - Lower limb fracture [Recovered/Resolved with Sequelae]
  - Osteoarthritis [Recovered/Resolved with Sequelae]
  - Lung disorder [Recovered/Resolved with Sequelae]
  - Drug ineffective [Recovered/Resolved with Sequelae]
  - Contraindicated product administered [Recovered/Resolved with Sequelae]
  - Therapeutic product effect decreased [Recovered/Resolved with Sequelae]
  - Arthralgia [Recovered/Resolved with Sequelae]
  - Intentional product use issue [Recovered/Resolved with Sequelae]
  - Exposure during pregnancy [Recovered/Resolved with Sequelae]
  - Off label use [Recovered/Resolved with Sequelae]
  - Prescribed overdose [Recovered/Resolved with Sequelae]
  - Product use issue [Recovered/Resolved with Sequelae]
  - Product use in unapproved indication [Recovered/Resolved with Sequelae]
  - Maternal exposure during pregnancy [Recovered/Resolved with Sequelae]
  - Blister [Recovered/Resolved with Sequelae]
  - Contusion [Recovered/Resolved with Sequelae]
  - Fatigue [Recovered/Resolved with Sequelae]
  - Impaired healing [Recovered/Resolved with Sequelae]
  - Irritable bowel syndrome [Recovered/Resolved with Sequelae]
  - Muscle injury [Recovered/Resolved with Sequelae]
  - Sleep disorder due to general medical condition, insomnia type [Recovered/Resolved with Sequelae]
  - Lower respiratory tract infection [Recovered/Resolved with Sequelae]
  - Swelling [Recovered/Resolved with Sequelae]
  - Pyrexia [Recovered/Resolved with Sequelae]
  - Abdominal discomfort [Recovered/Resolved with Sequelae]
  - Arthropathy [Recovered/Resolved with Sequelae]
  - Condition aggravated [Recovered/Resolved with Sequelae]
  - Hip arthroplasty [Recovered/Resolved with Sequelae]
  - Glossodynia [Recovered/Resolved with Sequelae]
  - Hand deformity [Recovered/Resolved with Sequelae]
  - Knee arthroplasty [Recovered/Resolved with Sequelae]
  - Pemphigus [Recovered/Resolved with Sequelae]
  - Weight increased [Recovered/Resolved with Sequelae]
  - Systemic lupus erythematosus [Recovered/Resolved with Sequelae]
  - Drug intolerance [Recovered/Resolved with Sequelae]
  - Wound [Recovered/Resolved with Sequelae]
  - Anti-cyclic citrullinated peptide antibody positive [Recovered/Resolved with Sequelae]
  - Infusion related reaction [Recovered/Resolved with Sequelae]
  - Respiratory disorder [Recovered/Resolved with Sequelae]
  - Muscle spasticity [Recovered/Resolved with Sequelae]
  - Night sweats [Recovered/Resolved with Sequelae]
  - Body temperature increased [Recovered/Resolved with Sequelae]
  - Ear pain [Recovered/Resolved with Sequelae]
  - Pain [Recovered/Resolved with Sequelae]
  - Peripheral swelling [Recovered/Resolved with Sequelae]
  - Gastrointestinal disorder [Recovered/Resolved with Sequelae]
  - Joint swelling [Recovered/Resolved with Sequelae]
  - Folliculitis [Recovered/Resolved with Sequelae]
  - Sinusitis [Recovered/Resolved with Sequelae]
  - Hypersensitivity [Recovered/Resolved with Sequelae]
  - Nasopharyngitis [Recovered/Resolved with Sequelae]
  - Pruritus [Recovered/Resolved with Sequelae]
  - Infection [Recovered/Resolved with Sequelae]
  - Rash [Recovered/Resolved with Sequelae]
  - Dyspnoea [Recovered/Resolved with Sequelae]
  - Stomatitis [Recovered/Resolved with Sequelae]
  - Abdominal pain upper [Recovered/Resolved with Sequelae]
  - Headache [Recovered/Resolved with Sequelae]
  - Treatment failure [Recovered/Resolved with Sequelae]
  - Asthenia [Recovered/Resolved with Sequelae]
  - Urticaria [Recovered/Resolved with Sequelae]
  - Diarrhoea [Recovered/Resolved with Sequelae]
  - Vomiting [Recovered/Resolved with Sequelae]
  - Ill-defined disorder [Recovered/Resolved with Sequelae]
  - Treatment failure [Recovered/Resolved with Sequelae]
  - Rheumatoid arthritis [Recovered/Resolved with Sequelae]
  - Rheumatoid factor positive [Recovered/Resolved with Sequelae]
  - Discomfort [Recovered/Resolved with Sequelae]
  - Pericarditis [Recovered/Resolved with Sequelae]
  - Adverse drug reaction [Recovered/Resolved with Sequelae]
  - General physical health deterioration [Recovered/Resolved with Sequelae]
  - Synovitis [Recovered/Resolved with Sequelae]
  - Live birth [Recovered/Resolved with Sequelae]
  - Alopecia [Recovered/Resolved with Sequelae]
  - Hepatic enzyme increased [Recovered/Resolved with Sequelae]
  - Adverse event [Recovered/Resolved with Sequelae]
  - Abdominal pain [Recovered/Resolved with Sequelae]
  - Decreased appetite [Recovered/Resolved with Sequelae]
  - Blood cholesterol increased [Recovered/Resolved with Sequelae]
  - Dizziness [Recovered/Resolved with Sequelae]
  - Drug hypersensitivity [Recovered/Resolved with Sequelae]
  - Duodenal ulcer perforation [Recovered/Resolved with Sequelae]
  - Helicobacter infection [Recovered/Resolved with Sequelae]
  - Fibromyalgia [Recovered/Resolved with Sequelae]
  - Hypertension [Recovered/Resolved with Sequelae]
  - Injury [Recovered/Resolved with Sequelae]
  - Hypoaesthesia [Recovered/Resolved with Sequelae]
  - Liver injury [Recovered/Resolved with Sequelae]
  - Malaise [Recovered/Resolved with Sequelae]
  - Mobility decreased [Recovered/Resolved with Sequelae]
  - Musculoskeletal stiffness [Recovered/Resolved with Sequelae]
  - Nausea [Recovered/Resolved with Sequelae]
  - Oedema [Recovered/Resolved with Sequelae]
  - Psoriatic arthropathy [Recovered/Resolved with Sequelae]
  - Rheumatic fever [Recovered/Resolved with Sequelae]
